FAERS Safety Report 13639312 (Version 1)
Quarter: 2017Q2

REPORT INFORMATION
  Report Type: Spontaneous
  Country: US (occurrence: US)
  Receive Date: 20170609
  Receipt Date: 20170609
  Transmission Date: 20170830
  Serious: No
  Sender: FDA-Public Use
  Company Number: US-ROCHE-762587

PATIENT
  Age: 36 Year
  Sex: Female

DRUGS (2)
  1. KLONOPIN [Suspect]
     Active Substance: CLONAZEPAM
     Indication: SLEEP DISORDER
     Route: 048
  2. KLONOPIN [Suspect]
     Active Substance: CLONAZEPAM
     Dosage: DOSE REDUCED
     Route: 048

REACTIONS (8)
  - Memory impairment [Recovering/Resolving]
  - Visual brightness [Recovering/Resolving]
  - Crying [Unknown]
  - Fatigue [Unknown]
  - Confusional state [Recovering/Resolving]
  - Insomnia [Unknown]
  - Palpitations [Not Recovered/Not Resolved]
  - Feeling abnormal [Recovering/Resolving]

NARRATIVE: CASE EVENT DATE: 201005
